FAERS Safety Report 21298922 (Version 2)
Quarter: 2022Q3

REPORT INFORMATION
  Report Type: Report from Study
  Country: US (occurrence: US)
  Receive Date: 20220906
  Receipt Date: 20220916
  Transmission Date: 20221026
  Serious: Yes (Death)
  Sender: FDA-Public Use
  Company Number: US-OTSUKA-2022_043436

PATIENT
  Age: 87 Year
  Sex: Female
  Weight: 47.6 kg

DRUGS (10)
  1. DEXTROMETHORPHAN HYDROBROMIDE\QUINIDINE SULFATE [Suspect]
     Active Substance: DEXTROMETHORPHAN HYDROBROMIDE\QUINIDINE SULFATE
     Indication: Cerebrovascular accident
     Dosage: 1 DF, BID (60 CAPSULES FOR 30 DAYS)
     Route: 048
     Dates: start: 20191209
  2. DEXTROMETHORPHAN HYDROBROMIDE\QUINIDINE SULFATE [Suspect]
     Active Substance: DEXTROMETHORPHAN HYDROBROMIDE\QUINIDINE SULFATE
     Indication: Affect lability
  3. LIPITOR [Concomitant]
     Active Substance: ATORVASTATIN CALCIUM
     Indication: Product used for unknown indication
     Dosage: 1 DF (AT BEDTIME)
     Route: 048
     Dates: start: 20220114
  4. COREG [Concomitant]
     Active Substance: CARVEDILOL
     Indication: Product used for unknown indication
     Dosage: 1 DF, BID (AT BREAKFAST AND DINNER0
     Route: 048
     Dates: start: 20210927
  5. VITAMIN D3 [Concomitant]
     Active Substance: CHOLECALCIFEROL
     Indication: Product used for unknown indication
     Dosage: 5000 UNIT, QD
     Route: 048
  6. IRON [Concomitant]
     Active Substance: IRON
     Indication: Product used for unknown indication
     Dosage: 1 DF, QD (WITH BREAKFAST)
     Route: 048
     Dates: start: 20220114
  7. LASIX [Concomitant]
     Active Substance: FUROSEMIDE
     Indication: Product used for unknown indication
     Dosage: UNK, TID (2 IN AM AND 1 IN AFTERNOON)
     Route: 065
     Dates: start: 20210706
  8. KLOR-CON [Concomitant]
     Active Substance: POTASSIUM CHLORIDE
     Indication: Product used for unknown indication
     Dosage: 1 DF (10 MEQ), TID
     Route: 048
     Dates: start: 20220114
  9. XARELTO [Concomitant]
     Active Substance: RIVAROXABAN
     Indication: Product used for unknown indication
     Dosage: 1 DF, QD
     Route: 048
     Dates: start: 20220114
  10. ENTRESTO [Concomitant]
     Active Substance: SACUBITRIL\VALSARTAN
     Indication: Product used for unknown indication
     Dosage: 1 DF, BID
     Route: 048
     Dates: start: 20220114, end: 20220414

REACTIONS (1)
  - Death [Fatal]

NARRATIVE: CASE EVENT DATE: 20220803
